FAERS Safety Report 7488740-1 (Version None)
Quarter: 2011Q2

REPORT INFORMATION
  Report Type: 
  Country: None (occurrence: None)
  Receive Date: 20110518
  Receipt Date: 20110506
  Transmission Date: 20111010
  Serious: Yes (Hospitalization, Other)
  Sender: FDA-Public Use
  Company Number: US-MYLANLABS-2011S1007943

PATIENT
  Age: 39 Year
  Sex: Female

DRUGS (8)
  1. SYNTHROID [Concomitant]
  2. CLOZAPINE [Suspect]
     Indication: SCHIZOPHRENIA
     Dates: end: 20110301
  3. DEPAKOTE [Concomitant]
  4. GEMFIBROZIL [Concomitant]
  5. LOVASTATIN [Concomitant]
  6. COGENTIN [Concomitant]
  7. NOVOLOG [Concomitant]
     Dosage: SLIDING SCALE
  8. METFORMIN HCL [Concomitant]

REACTIONS (11)
  - ACUTE RESPIRATORY FAILURE [None]
  - SHOCK [None]
  - RENAL FAILURE ACUTE [None]
  - NEUROLEPTIC MALIGNANT SYNDROME [None]
  - PULMONARY OEDEMA [None]
  - ILEUS PARALYTIC [None]
  - RESPIRATORY FAILURE [None]
  - METABOLIC ACIDOSIS [None]
  - RHABDOMYOLYSIS [None]
  - CONSTIPATION [None]
  - GRANULOCYTOPENIA [None]
